FAERS Safety Report 25869914 (Version 1)
Quarter: 2025Q4

REPORT INFORMATION
  Report Type: Spontaneous
  Country: US (occurrence: US)
  Receive Date: 20251001
  Receipt Date: 20251001
  Transmission Date: 20260118
  Serious: No
  Sender: RECKITT BENCKISER
  Company Number: US-INDIVIOR US-INDV-157277-2024

PATIENT
  Sex: Male
  Weight: 543.76 kg

DRUGS (1)
  1. SUBOXONE [Suspect]
     Active Substance: BUPRENORPHINE HYDROCHLORIDE\NALOXONE HYDROCHLORIDE
     Indication: Drug use disorder
     Dosage: 2 MILLIGRAM, QD
     Route: 060
     Dates: start: 201805

REACTIONS (8)
  - Noninfective gingivitis [Unknown]
  - Periodontitis [Unknown]
  - Pulpitis dental [Unknown]
  - Dental restoration failure [Unknown]
  - Tooth abscess [Unknown]
  - Dental caries [Unknown]
  - Tooth erosion [Unknown]
  - Toothache [Unknown]
